FAERS Safety Report 7439504-6 (Version None)
Quarter: 2011Q2

REPORT INFORMATION
  Report Type: 
  Country: None (occurrence: None)
  Receive Date: 20110427
  Receipt Date: 20110421
  Transmission Date: 20111010
  Serious: Yes (Other)
  Sender: FDA-Public Use
  Company Number: US-SANOFI-AVENTIS-2011SA012552

PATIENT
  Age: 65 Year
  Sex: Female
  Weight: 73.6 kg

DRUGS (5)
  1. MULTAQ [Suspect]
     Indication: ATRIAL FIBRILLATION
     Route: 048
     Dates: start: 20101229, end: 20110128
  2. ESTRADIOL [Concomitant]
  3. MAGNESIUM [Concomitant]
  4. ASPIRIN [Concomitant]
  5. GLUCOSAMINE [Concomitant]

REACTIONS (2)
  - HEPATOCELLULAR INJURY [None]
  - ATRIAL FIBRILLATION [None]
